FAERS Safety Report 6026831-2 (Version None)
Quarter: 2009Q1

REPORT INFORMATION
  Report Type: 
  Country: None (occurrence: None)
  Receive Date: 20090105
  Receipt Date: 20081226
  Transmission Date: 20090719
  Serious: Yes (Hospitalization)
  Sender: FDA-Public Use
  Company Number: FR-WYE-G02582508

PATIENT
  Sex: Male
  Weight: 75 kg

DRUGS (4)
  1. TORISEL [Suspect]
     Indication: METASTATIC RENAL CELL CARCINOMA
     Route: 042
     Dates: start: 20081021, end: 20081028
  2. COAPROVEL [Concomitant]
     Indication: HYPERTENSION
     Dosage: 300 MG OF IRBESARTAN (FREQUENCY UNKNOWN)
     Route: 048
     Dates: start: 20070101
  3. AVASTIN [Suspect]
     Indication: METASTATIC RENAL CELL CARCINOMA
     Dosage: 750 MG
     Route: 042
     Dates: start: 20081021, end: 20081021
  4. AMLOR [Concomitant]
     Indication: HYPERTENSION
     Dosage: 10 MG (FREQUENCY UNKNOWN)
     Route: 048
     Dates: start: 20070101

REACTIONS (1)
  - COLITIS ISCHAEMIC [None]
